FAERS Safety Report 9388050 (Version 6)
Quarter: 2015Q1

REPORT INFORMATION
  Report Type: Spontaneous
  Country: US (occurrence: US)
  Receive Date: 20130708
  Receipt Date: 20150210
  Transmission Date: 20150721
  Serious: No
  Sender: FDA-Public Use
  Company Number: US-BAYER-2013-081258

PATIENT
  Age: 51 Year
  Sex: Female

DRUGS (2)
  1. CLIMARA PRO [Suspect]
     Active Substance: ESTRADIOL\LEVONORGESTREL
     Indication: HOT FLUSH
     Dosage: UNK
     Route: 062
     Dates: start: 201305
  2. CLIMARA PRO [Suspect]
     Active Substance: ESTRADIOL\LEVONORGESTREL
     Indication: HOT FLUSH
     Dosage: UNK
     Route: 062

REACTIONS (13)
  - Application site erythema [None]
  - Application site pruritus [None]
  - Product adhesion issue [None]
  - Drug ineffective [None]
  - Dermatitis contact [None]
  - Product physical issue [None]
  - Product adhesion issue [None]
  - Application site vesicles [None]
  - Application site rash [None]
  - Asthenia [None]
  - Skin irritation [None]
  - Malaise [None]
  - Product adhesion issue [None]

NARRATIVE: CASE EVENT DATE: 2013
